FAERS Safety Report 4850966-0 (Version None)
Quarter: 2005Q4

REPORT INFORMATION
  Report Type: 
  Country: None (occurrence: None)
  Receive Date: 20051130
  Receipt Date: 20051019
  Transmission Date: 20060501
  Serious: No
  Sender: FDA-Public Use
  Company Number: FABR-11280

PATIENT
  Age: 20 Year
  Sex: Male
  Weight: 55 kg

DRUGS (6)
  1. FABRAZYME [Suspect]
     Indication: FABRY'S DISEASE
     Dosage: 55 MG Q2WKS IV
     Route: 042
     Dates: start: 20050216
  2. FABRAZYME [Suspect]
  3. TEGRETOL [Concomitant]
  4. PARACETAMOL [Concomitant]
  5. PREDNISOLONE [Concomitant]
  6. CLARITIN [Concomitant]

REACTIONS (2)
  - CHILLS [None]
  - FEELING COLD [None]
